FAERS Safety Report 5210548-8 (Version None)
Quarter: 2007Q1

REPORT INFORMATION
  Report Type: 
  Country: None (occurrence: None)
  Receive Date: 20070117
  Receipt Date: 20070110
  Transmission Date: 20070707
  Serious: Yes (Disabling)
  Sender: FDA-Public Use
  Company Number: PHBS2006NL16704

PATIENT
  Age: 63 Year
  Sex: Female
  Weight: 57 kg

DRUGS (1)
  1. DICLOFENAC SODIUM [Suspect]
     Indication: MIGRAINE
     Dosage: 75 MG, ONCE/SINGLE
     Route: 030
     Dates: start: 20061023

REACTIONS (1)
  - PERONEAL NERVE PALSY [None]
